FAERS Safety Report 24308697 (Version 2)
Quarter: 2024Q4

REPORT INFORMATION
  Report Type: Report from Study
  Country: US (occurrence: US)
  Receive Date: 20240911
  Receipt Date: 20241007
  Transmission Date: 20250115
  Serious: Yes (Death)
  Sender: DAIICHI
  Company Number: US-DSJP-DSU-2024-120567

PATIENT
  Sex: Female

DRUGS (3)
  1. ENHERTU [Suspect]
     Active Substance: FAM-TRASTUZUMAB DERUXTECAN-NXKI
     Indication: Breast cancer female
     Dosage: 591.3 MG, ONCE EVERY 3 WK
     Route: 042
     Dates: start: 20240118, end: 20240118
  2. ENHERTU [Suspect]
     Active Substance: FAM-TRASTUZUMAB DERUXTECAN-NXKI
     Dosage: 500 MG, ONCE EVERY 3 WK
     Route: 042
     Dates: start: 20240710, end: 20240710
  3. ENHERTU [Suspect]
     Active Substance: FAM-TRASTUZUMAB DERUXTECAN-NXKI
     Dosage: 500 MG, ONCE EVERY 3 WK
     Route: 042
     Dates: start: 20240808, end: 20240808

REACTIONS (4)
  - Neoplasm malignant [Fatal]
  - Weight decreased [Unknown]
  - Therapy change [Not Recovered/Not Resolved]
  - Therapy cessation [Unknown]

NARRATIVE: CASE EVENT DATE: 20240101
